FAERS Safety Report 9127344 (Version 1)
Quarter: 2013Q1

REPORT INFORMATION
  Report Type: Spontaneous
  Country: US (occurrence: US)
  Receive Date: 20130228
  Receipt Date: 20130228
  Transmission Date: 20140127
  Serious: No
  Sender: FDA-Public Use
  Company Number: US-GLAXOSMITHKLINE-A0970200A

PATIENT
  Age: 64 Year
  Sex: Female

DRUGS (10)
  1. LAMOTRIGINE [Suspect]
     Indication: BIPOLAR DISORDER
     Dosage: 25MG PER DAY
     Route: 048
     Dates: start: 20120311, end: 20120313
  2. OXYBUTYNIN [Concomitant]
  3. NEXIUM [Concomitant]
  4. WELLBUTRIN [Concomitant]
  5. PRAMIPEXOLE [Concomitant]
  6. SIMVASTATIN [Concomitant]
  7. ZOLPIDEM [Concomitant]
  8. OXYCONTIN [Concomitant]
  9. KLONOPIN [Concomitant]
  10. UNSPECIFIED DRUG [Concomitant]

REACTIONS (2)
  - Rash erythematous [Not Recovered/Not Resolved]
  - Skin exfoliation [Unknown]
